FAERS Safety Report 7997500-4 (Version None)
Quarter: 2011Q4

REPORT INFORMATION
  Report Type: 
  Country: None (occurrence: None)
  Receive Date: 20111221
  Receipt Date: 20111221
  Transmission Date: 20120403
  Serious: Yes (Life-Threatening)
  Sender: FDA-Public Use
  Company Number: None

PATIENT
  Age: 55 Year
  Sex: Female
  Weight: 63.502 kg

DRUGS (2)
  1. ADRIAMYCIN PFS [Suspect]
     Indication: BREAST CANCER STAGE III
     Dosage: IV
     Route: 041
     Dates: start: 20110228, end: 20110410
  2. AIVASTIN [Concomitant]
     Indication: BREAST CANCER STAGE III
     Route: 041
     Dates: start: 20110228, end: 20110912

REACTIONS (5)
  - ASTHENIA [None]
  - DYSPNOEA [None]
  - CHEMOTHERAPY [None]
  - HYPERTENSION [None]
  - FATIGUE [None]
